FAERS Safety Report 6521444-8 (Version None)
Quarter: 2009Q4

REPORT INFORMATION
  Report Type: 
  Country: None (occurrence: None)
  Receive Date: 20091230
  Receipt Date: 20091221
  Transmission Date: 20100525
  Serious: Yes (Other)
  Sender: FDA-Public Use
  Company Number: US-BAYER-200930042NA

PATIENT
  Age: 67 Year
  Sex: Female

DRUGS (2)
  1. BETASERON [Suspect]
     Indication: MULTIPLE SCLEROSIS
     Dosage: TOTAL DAILY DOSE: 8 MIU
     Route: 058
     Dates: start: 20010101, end: 20090730
  2. SYNTHROID [Concomitant]

REACTIONS (9)
  - CENTRAL NERVOUS SYSTEM LESION [None]
  - CHILLS [None]
  - HYPOAESTHESIA [None]
  - INFLAMMATION [None]
  - MENINGITIS [None]
  - MOBILITY DECREASED [None]
  - SWELLING [None]
  - THYROID FUNCTION TEST ABNORMAL [None]
  - TREMOR [None]
